FAERS Safety Report 5351337-3 (Version None)
Quarter: 2007Q2

REPORT INFORMATION
  Report Type: 
  Country: None (occurrence: None)
  Receive Date: 20070608
  Receipt Date: 20070602
  Transmission Date: 20071010
  Serious: Yes (Other)
  Sender: FDA-Public Use
  Company Number: US-BOEHRINGER INGELHEIM PHARMACEUTICALS, INC.-2007-BP-07610PF

PATIENT
  Sex: Male
  Weight: 99.79 kg

DRUGS (4)
  1. SPIRIVA [Suspect]
  2. CHANTIX [Suspect]
     Indication: SMOKING CESSATION THERAPY
     Dates: start: 20070115, end: 20070207
  3. FLOMAX [Concomitant]
  4. NEXIUM [Concomitant]

REACTIONS (6)
  - CHRONIC OBSTRUCTIVE PULMONARY DISEASE [None]
  - EMPHYSEMA [None]
  - FEELING ABNORMAL [None]
  - FLATULENCE [None]
  - PELVIC FRACTURE [None]
  - VASCULAR BYPASS GRAFT [None]
